FAERS Safety Report 8381083-3 (Version None)
Quarter: 2012Q2

REPORT INFORMATION
  Report Type: 
  Country: None (occurrence: None)
  Receive Date: 20120503
  Receipt Date: 20120419
  Transmission Date: 20120825
  Serious: Yes (Other)
  Sender: FDA-Public Use
  Company Number: AECAN201100287

PATIENT
  Age: 42 Year
  Sex: Female
  Weight: 95 kg

DRUGS (7)
  1. BENADRYL [Concomitant]
  2. PREDNISONE TAB [Concomitant]
  3. SOLU-MEDROL [Concomitant]
  4. GAMUNEX [Suspect]
     Indication: CHRONIC INFLAMMATORY DEMYELINATING POLYRADICULONEUROPATHY
     Dosage: 95 GM;TOTAL;IV
     Route: 042
     Dates: start: 20101223, end: 20110826
  5. GAMUNEX [Suspect]
  6. GAMUNEX [Suspect]
  7. IMURAN [Concomitant]

REACTIONS (3)
  - ABDOMINAL DISCOMFORT [None]
  - DRUG HYPERSENSITIVITY [None]
  - PALPITATIONS [None]
